FAERS Safety Report 7430485-8 (Version None)
Quarter: 2011Q2

REPORT INFORMATION
  Report Type: 
  Country: None (occurrence: None)
  Receive Date: 20110421
  Receipt Date: 20100719
  Transmission Date: 20111010
  Serious: No
  Sender: FDA-Public Use
  Company Number: US-ASTRAZENECA-2010SE33563

PATIENT
  Sex: Male
  Weight: 113.4 kg

DRUGS (3)
  1. ZESTRIL [Concomitant]
     Indication: HYPERTENSION
  2. TOPROL-XL [Suspect]
     Indication: HYPERTENSION
     Route: 048
     Dates: start: 20020101
  3. PREDNISONE [Concomitant]
     Indication: COLITIS

REACTIONS (3)
  - COLITIS [None]
  - DIARRHOEA [None]
  - ERECTILE DYSFUNCTION [None]
